FAERS Safety Report 15697838 (Version 3)
Quarter: 2019Q1

REPORT INFORMATION
  Report Type: Spontaneous
  Country: US (occurrence: US)
  Receive Date: 20181207
  Receipt Date: 20190319
  Transmission Date: 20190417
  Serious: Yes (Hospitalization)
  Sender: FDA-Public Use
  Company Number: US-PFIZER INC-2018499757

PATIENT
  Age: 60 Year
  Sex: Female

DRUGS (1)
  1. XELJANZ XR [Suspect]
     Active Substance: TOFACITINIB CITRATE
     Dosage: 11 MG, UNSPECIFIED FREQUENCY

REACTIONS (7)
  - Lip swelling [Unknown]
  - Vulvovaginal pruritus [Unknown]
  - Pain [Unknown]
  - Skin erosion [Unknown]
  - Oral mucosal eruption [Unknown]
  - Rash [Unknown]
  - Genital rash [Unknown]
